FAERS Safety Report 14328596 (Version 2)
Quarter: 2018Q1

REPORT INFORMATION
  Report Type: Spontaneous
  Country: BR (occurrence: BR)
  Receive Date: 20171227
  Receipt Date: 20180116
  Transmission Date: 20180509
  Serious: Yes (Other)
  Sender: FDA-Public Use
  Company Number: PHHY2017BR179542

PATIENT
  Age: 68 Year
  Sex: Male
  Weight: 108 kg

DRUGS (4)
  1. SELOZOK [Concomitant]
     Active Substance: METOPROLOL SUCCINATE
     Indication: ARRHYTHMIA
     Dosage: 2 DF, QD
     Route: 048
  2. ASA [Concomitant]
     Active Substance: ASPIRIN
     Indication: ANTICOAGULANT THERAPY
     Dosage: 2 DF, QD
     Route: 048
     Dates: start: 1999
  3. VITALUX PLUS [Suspect]
     Active Substance: VITAMINS
     Indication: VISUAL IMPAIRMENT
     Dosage: UNK
     Route: 048
     Dates: start: 201707
  4. ENALAPRIL [Concomitant]
     Active Substance: ENALAPRIL
     Indication: BLOOD PRESSURE MANAGEMENT
     Dosage: 2 DF, QD
     Route: 048
     Dates: start: 1997

REACTIONS (4)
  - Poor quality drug administered [Unknown]
  - Abdominal pain [Recovered/Resolved]
  - Product physical consistency issue [Unknown]
  - Diarrhoea [Recovered/Resolved]

NARRATIVE: CASE EVENT DATE: 201712
